FAERS Safety Report 15949519 (Version 3)
Quarter: 2019Q1

REPORT INFORMATION
  Report Type: Spontaneous
  Country: US (occurrence: US)
  Receive Date: 20190211
  Receipt Date: 20190304
  Transmission Date: 20190417
  Serious: Yes (Other)
  Sender: FDA-Public Use
  Company Number: US-ASTRAZENECA-2018SF34321

PATIENT
  Age: 15348 Day
  Sex: Female
  Weight: 98.8 kg

DRUGS (17)
  1. DOCUSATE [Concomitant]
     Active Substance: DOCUSATE
  2. TRAMADOL. [Concomitant]
     Active Substance: TRAMADOL
     Dates: start: 20060215
  3. ONDANSETRON [Concomitant]
     Active Substance: ONDANSETRON
  4. MORPHINE [Concomitant]
     Active Substance: MORPHINE
  5. ENOXAPARIN [Concomitant]
     Active Substance: ENOXAPARIN
  6. DIAZEPAM. [Concomitant]
     Active Substance: DIAZEPAM
  7. CYCLOBENZAPRINE. [Concomitant]
     Active Substance: CYCLOBENZAPRINE
  8. IBUPROFEN. [Concomitant]
     Active Substance: IBUPROFEN
     Dates: start: 20060215
  9. HYDROXYZINE [Concomitant]
     Active Substance: HYDROXYZINE HYDROCHLORIDE
     Dates: start: 20060215
  10. EPOETIN ALFA [Concomitant]
     Active Substance: ERYTHROPOIETIN
     Dates: start: 20060215
  11. ACETAMINOPHEN. [Concomitant]
     Active Substance: ACETAMINOPHEN
  12. DILTIAZEM. [Concomitant]
     Active Substance: DILTIAZEM
     Dates: start: 20060215
  13. PRILOSEC OTC [Suspect]
     Active Substance: OMEPRAZOLE MAGNESIUM
     Route: 048
     Dates: start: 20060103, end: 20101126
  14. OXYCODONE [Concomitant]
     Active Substance: OXYCODONE
  15. CALCITRIOL. [Concomitant]
     Active Substance: CALCITRIOL
  16. PROTONIX [Concomitant]
     Active Substance: PANTOPRAZOLE SODIUM
     Dates: start: 20060215
  17. CALCIUM CARBONATE. [Concomitant]
     Active Substance: CALCIUM CARBONATE

REACTIONS (4)
  - Renal injury [Unknown]
  - Chronic kidney disease [Unknown]
  - Acute kidney injury [Unknown]
  - Renal failure [Unknown]

NARRATIVE: CASE EVENT DATE: 20060213
